FAERS Safety Report 6672873-3 (Version None)
Quarter: 2010Q2

REPORT INFORMATION
  Report Type: 
  Country: None (occurrence: None)
  Receive Date: 20100408
  Receipt Date: 20100329
  Transmission Date: 20101027
  Serious: Yes (Hospitalization, Other)
  Sender: FDA-Public Use
  Company Number: PHEH2010US02646

PATIENT
  Sex: Female

DRUGS (5)
  1. GLEEVEC [Suspect]
     Dosage: 400 MG, QD
     Route: 048
  2. HEPARIN [Concomitant]
  3. COUMADIN [Concomitant]
  4. PRISTIQ [Concomitant]
  5. ANTICOAGULANTS [Concomitant]

REACTIONS (14)
  - ANXIETY [None]
  - ECCHYMOSIS [None]
  - FATIGUE [None]
  - HEADACHE [None]
  - JOINT INJURY [None]
  - KNEE OPERATION [None]
  - LAPAROSCOPIC SURGERY [None]
  - LETHARGY [None]
  - OBESITY [None]
  - ORTHOPEDIC PROCEDURE [None]
  - PULMONARY EMBOLISM [None]
  - THROMBOSIS [None]
  - WALKING AID USER [None]
  - WEIGHT INCREASED [None]
